FAERS Safety Report 4480688-X (Version None)
Quarter: 2004Q4

REPORT INFORMATION
  Report Type: 
  Country: None (occurrence: None)
  Receive Date: 20041019
  Receipt Date: 20041001
  Transmission Date: 20050328
  Serious: Yes (Death)
  Sender: FDA-Public Use
  Company Number: DSA_70441_2004

PATIENT
  Age: 60 Year

DRUGS (3)
  1. OXYCODONE [Suspect]
     Dosage: DF PO
     Route: 048
  2. DOXAZOSIN [Suspect]
     Dosage: DF PO
     Route: 048
  3. DILTIAZEM [Suspect]
     Dosage: DF PO
     Route: 048

REACTIONS (3)
  - CARDIO-RESPIRATORY ARREST [None]
  - COMPLETED SUICIDE [None]
  - MULTIPLE DRUG OVERDOSE INTENTIONAL [None]
